FAERS Safety Report 5564811-1 (Version None)
Quarter: 2007Q4

REPORT INFORMATION
  Report Type: 
  Country: None (occurrence: None)
  Receive Date: 20071212
  Receipt Date: 20071203
  Transmission Date: 20080405
  Serious: Yes (Hospitalization, Other)
  Sender: FDA-Public Use
  Company Number: 062-21880-07110751

PATIENT
  Age: 75 Year
  Sex: Male
  Weight: 98 kg

DRUGS (3)
  1. REVLIMID [Suspect]
     Indication: PLASMACYTOMA
     Dosage: 15 MG, EVERY OTHER DAY, ORAL
     Route: 048
     Dates: start: 20070822, end: 20070912
  2. DEXAMETHASONE TAB [Concomitant]
  3. MARCUMAR [Concomitant]

REACTIONS (5)
  - ANAEMIA [None]
  - DEHYDRATION [None]
  - EMPYEMA [None]
  - ENTEROCOCCAL INFECTION [None]
  - FURUNCLE [None]
